FAERS Safety Report 9049422 (Version 8)
Quarter: 2014Q4

REPORT INFORMATION
  Report Type: Report from Study
  Country: US (occurrence: US)
  Receive Date: 20130205
  Receipt Date: 20141010
  Transmission Date: 20150529
  Serious: Yes (Life-Threatening, Hospitalization, Other)
  Sender: FDA-Public Use
  Company Number: US-JNJFOC-20130114208

PATIENT
  Age: 18 Year
  Sex: Male
  Weight: 50.2 kg

DRUGS (10)
  1. INFLIXIMAB, RECOMBINANT [Suspect]
     Active Substance: INFLIXIMAB
     Indication: CROHN^S DISEASE
     Route: 042
     Dates: start: 20121113
  2. 5-ASA [Concomitant]
     Active Substance: MESALAMINE
  3. VITAMIN D [Concomitant]
     Active Substance: CHOLECALCIFEROL
  4. INFLIXIMAB, RECOMBINANT [Suspect]
     Active Substance: INFLIXIMAB
     Indication: CROHN^S DISEASE
     Route: 042
     Dates: start: 20110912
  5. MULTIVITAMINS [Concomitant]
     Active Substance: VITAMINS
  6. VENOFER [Concomitant]
     Active Substance: IRON SUCROSE
  7. CALCIUM [Concomitant]
     Active Substance: CALCIUM
  8. INFLIXIMAB, RECOMBINANT [Suspect]
     Active Substance: INFLIXIMAB
     Indication: CROHN^S DISEASE
     Route: 042
     Dates: start: 20121231
  9. IRON [Concomitant]
     Active Substance: IRON
  10. PREDNISONE. [Concomitant]
     Active Substance: PREDNISONE

REACTIONS (9)
  - Crohn^s disease [Recovered/Resolved]
  - Malnutrition [Recovered/Resolved]
  - Portal vein thrombosis [Recovered/Resolved with Sequelae]
  - Peripancreatic fluid collection [Recovered/Resolved]
  - Hypokalaemia [Recovered/Resolved]
  - Fistula [Not Recovered/Not Resolved]
  - Metabolic disorder [Recovered/Resolved]
  - Splenomegaly [Not Recovered/Not Resolved]
  - Hyponatraemia [Recovered/Resolved]

NARRATIVE: CASE EVENT DATE: 20120830
